FAERS Safety Report 8838837 (Version 1)
Quarter: 2012Q4

REPORT INFORMATION
  Report Type: 
  Country: BR (occurrence: BR)
  Receive Date: 20121015
  Receipt Date: 20121015
  Transmission Date: 20130627
  Serious: Yes (Hospitalization)
  Sender: FDA-Public Use
  Company Number: BR-AMGEN-BRASP2012065060

PATIENT
  Age: 71 Year
  Sex: Female
  Weight: 65 kg

DRUGS (10)
  1. ENBREL [Suspect]
     Indication: RHEUMATOID ARTHRITIS
     Dosage: 50 mg, once weekly
     Route: 058
     Dates: start: 201208
  2. ARAVA [Concomitant]
     Dosage: UNK UNK, UNK
  3. METHOTREXATE [Concomitant]
     Dosage: UNK UNK, UNK
  4. ENALAPRIL [Concomitant]
     Dosage: 10 mg, UNK
  5. LOSARTAN [Concomitant]
     Dosage: 50 mg, UNK
  6. PURAN T4 [Concomitant]
     Dosage: UNK UNK, UNK
  7. AMLODIPINE [Concomitant]
     Dosage: UNK UNK, UNK
  8. METHYLDOPA [Concomitant]
     Dosage: 500 mg, UNK
  9. CODEINE [Concomitant]
     Dosage: UNK UNK, UNK
  10. CORTISONE [Concomitant]
     Dosage: 5 mg, UNK

REACTIONS (6)
  - Spinal disorder [Unknown]
  - Pyrexia [Unknown]
  - Bone pain [Unknown]
  - Pain in extremity [Unknown]
  - Pain in extremity [Unknown]
  - Pain in extremity [Unknown]
